FAERS Safety Report 6348496-2 (Version None)
Quarter: 2009Q3

REPORT INFORMATION
  Report Type: 
  Country: None (occurrence: None)
  Receive Date: 20090911
  Receipt Date: 20070821
  Transmission Date: 20100115
  Serious: Yes (Other)
  Sender: FDA-Public Use
  Company Number: US-ASTRAZENECA-2007UW12280

PATIENT
  Age: 16074 Day
  Sex: Male
  Weight: 119.3 kg

DRUGS (15)
  1. SEROQUEL [Suspect]
     Indication: BIPOLAR DISORDER
     Dosage: 100 MG DAILY, 300 MG AT NIGHT
     Route: 048
     Dates: start: 20000101
  2. SEROQUEL [Suspect]
     Route: 048
     Dates: start: 20021025
  3. CLOZARIL [Concomitant]
  4. GEODON [Concomitant]
     Dates: start: 20070518
  5. THORAZINE [Concomitant]
  6. ZOLOFT [Concomitant]
     Dates: start: 20041021
  7. PREVACID [Concomitant]
     Route: 048
     Dates: start: 20000112
  8. LASIX [Concomitant]
     Dates: start: 20041021
  9. VALIUM [Concomitant]
     Dosage: 10 MG IN TAPERING DOSE
     Dates: start: 19870101, end: 20070101
  10. NEXIUM [Concomitant]
     Dates: start: 20070518
  11. TRAZODONE HCL [Concomitant]
     Dates: start: 20070518
  12. DEPAKOTE [Concomitant]
     Dosage: 500 MG TWICE DAILY, 1000 MG DAILY, 1000 MG AT NIGHT
     Route: 048
     Dates: start: 20000217
  13. DILANTIN [Concomitant]
     Dosage: 300 MG TWICE DAILY, 600 MG DAILY
     Dates: start: 20000112
  14. TEGRETOL [Concomitant]
     Dates: start: 20000112, end: 20000114
  15. PREDNISONE [Concomitant]
     Route: 048
     Dates: start: 20050118

REACTIONS (4)
  - INSULIN-REQUIRING TYPE 2 DIABETES MELLITUS [None]
  - NEUROPATHY PERIPHERAL [None]
  - TYPE 1 DIABETES MELLITUS [None]
  - TYPE 2 DIABETES MELLITUS [None]
